FAERS Safety Report 9344898 (Version 1)
Quarter: 2013Q2

REPORT INFORMATION
  Report Type: Spontaneous
  Country: US (occurrence: US)
  Receive Date: 20130612
  Receipt Date: 20130612
  Transmission Date: 20140414
  Serious: Yes (Life-Threatening, Hospitalization, Other)
  Sender: FDA-Public Use
  Company Number: US-TEVA-411517USA

PATIENT
  Age: 78 Year
  Sex: Male
  Weight: 81.72 kg

DRUGS (8)
  1. TREANDA [Suspect]
     Indication: B-CELL LYMPHOMA
     Route: 042
  2. TREANDA [Suspect]
     Route: 042
  3. TREANDA [Suspect]
     Route: 042
  4. TREANDA [Suspect]
     Route: 042
  5. BENICAR [Concomitant]
     Indication: HYPERTENSION
  6. BACTRIM [Concomitant]
     Indication: ANTIBIOTIC THERAPY
  7. GLYBURIDE [Concomitant]
     Indication: DIABETES MELLITUS
     Route: 048
  8. PREDNISONE [Concomitant]
     Indication: CHEMOTHERAPY

REACTIONS (9)
  - Acute myocardial infarction [Recovered/Resolved]
  - Atrial fibrillation [Unknown]
  - Cardiac failure congestive [Recovered/Resolved]
  - Portal hypertension [Unknown]
  - Varices oesophageal [Not Recovered/Not Resolved]
  - Hepatic cirrhosis [Recovered/Resolved]
  - Aspartate aminotransferase increased [Recovered/Resolved]
  - Ascites [Recovered/Resolved]
  - Non-Hodgkin^s lymphoma recurrent [Not Recovered/Not Resolved]
